FAERS Safety Report 6173191-2 (Version None)
Quarter: 2009Q2

REPORT INFORMATION
  Report Type: 
  Country: None (occurrence: None)
  Receive Date: 20090428
  Receipt Date: 20090416
  Transmission Date: 20091009
  Serious: Yes (Hospitalization)
  Sender: FDA-Public Use
  Company Number: 2009AL002242

PATIENT
  Age: 10 Year
  Sex: Male
  Weight: 30 kg

DRUGS (4)
  1. METOCLOPRAMIDE [Suspect]
     Indication: UPPER RESPIRATORY TRACT INFECTION
     Dosage: 0.5 MG/KG; TID; PO
     Route: 048
  2. ANTIBIOTICS [Concomitant]
  3. NON-STEROIDAL ANTI-INFLAMMATORY ANALGESICS [Concomitant]
  4. .. [Concomitant]

REACTIONS (2)
  - DYSARTHRIA [None]
  - DYSTONIA [None]
